FAERS Safety Report 6169425-0 (Version None)
Quarter: 2009Q2

REPORT INFORMATION
  Report Type: 
  Country: None (occurrence: None)
  Receive Date: 20090428
  Receipt Date: 20090415
  Transmission Date: 20091009
  Serious: Yes (Other)
  Sender: FDA-Public Use
  Company Number: PHHY2009BR14203

PATIENT
  Sex: Female

DRUGS (3)
  1. GLEEVEC [Suspect]
     Indication: CHRONIC MYELOID LEUKAEMIA
     Dosage: 400 MG, QD
     Route: 048
  2. OMEPRAZOL [Concomitant]
     Indication: DYSPEPSIA
     Dosage: 40 MG, 1 TABLET DAILY
     Route: 048
  3. EPOGEN [Concomitant]
     Indication: ANAEMIA
     Dosage: 4000 IU, QW
     Route: 058

REACTIONS (6)
  - ABNORMAL BEHAVIOUR [None]
  - AMNESIA [None]
  - CEREBRAL ISCHAEMIA [None]
  - DYSLALIA [None]
  - MEMORY IMPAIRMENT [None]
  - SPEECH DISORDER [None]
